FAERS Safety Report 15228007 (Version 3)
Quarter: 2018Q3

REPORT INFORMATION
  Report Type: Spontaneous
  Country: US (occurrence: US)
  Receive Date: 20180801
  Receipt Date: 20180802
  Transmission Date: 20181010
  Serious: Yes (Other)
  Sender: FDA-Public Use
  Company Number: US-CELGENEUS-USA-20180708512

PATIENT
  Age: 64 Year
  Sex: Female

DRUGS (1)
  1. OTEZLA [Suspect]
     Active Substance: APREMILAST
     Indication: PSORIASIS
     Dosage: 10MG?20MG?30MG
     Route: 048
     Dates: start: 20180720

REACTIONS (6)
  - Asthenia [Unknown]
  - Blindness unilateral [Unknown]
  - Migraine [Unknown]
  - Diarrhoea [Unknown]
  - Expired product administered [Unknown]
  - Feeling jittery [Unknown]

NARRATIVE: CASE EVENT DATE: 20180720
